FAERS Safety Report 6979006-4 (Version None)
Quarter: 2010Q3

REPORT INFORMATION
  Report Type: 
  Country: None (occurrence: None)
  Receive Date: 20100824
  Receipt Date: 20100527
  Transmission Date: 20110219
  Serious: Yes (Other)
  Sender: FDA-Public Use
  Company Number: 309132

PATIENT
  Sex: Female
  Weight: 181.4 kg

DRUGS (12)
  1. VICTOZA [Suspect]
     Indication: TYPE 2 DIABETES MELLITUS
     Dosage: 0.6, SUBCUTANEOUS; 1.8 MG, QD, SUBCUTANEOUS
     Route: 058
     Dates: end: 20100504
  2. VICTOZA [Suspect]
     Indication: TYPE 2 DIABETES MELLITUS
     Dosage: 0.6, SUBCUTANEOUS; 1.8 MG, QD, SUBCUTANEOUS
     Route: 058
     Dates: start: 20100408
  3. LANTUS [Concomitant]
  4. NOVOLOG (INSULIN ASPART, INSULIN ASPART) [Concomitant]
  5. CELEXA [Concomitant]
  6. LEVOTHYROXINE (LOVOTHYROXINE) [Concomitant]
  7. PHENERGAN /00033001/ (PROMETHAZINE) [Concomitant]
  8. LISINOPRIL [Concomitant]
  9. HYDROCHLOROTHIAZIDE [Concomitant]
  10. GLUCOSAMINE + CHONDROITIN (CHONDROITIN SULFATE, GLUCOSAMINE) [Concomitant]
  11. SIMVASTATIN [Concomitant]
  12. CALCIUM SITH VITAMIN D /00944201/ (CALCIUM CARBONATE, COLECALCIFEROL) [Concomitant]

REACTIONS (3)
  - DYSPNOEA [None]
  - PANCREATITIS [None]
  - WEIGHT DECREASED [None]
